FAERS Safety Report 9332944 (Version 2)
Quarter: 2013Q4

REPORT INFORMATION
  Report Type: Spontaneous
  Country: US (occurrence: US)
  Receive Date: 20130606
  Receipt Date: 20131004
  Transmission Date: 20140711
  Serious: Yes (Hospitalization)
  Sender: FDA-Public Use
  Company Number: US-B.I. PHARMACEUTICALS,INC./RIDGEFIELD-2013-BI-15850BP

PATIENT
  Age: 76 Year
  Sex: Female
  Weight: 43 kg

DRUGS (2)
  1. DULCOLAX TABLETS [Suspect]
     Indication: CONSTIPATION
     Dosage: 10 MG
     Route: 048
     Dates: start: 2003
  2. DULCOLAX TABLETS [Suspect]
     Dosage: 10 MG
     Route: 048
     Dates: start: 2009

REACTIONS (8)
  - Intestinal perforation [Recovered/Resolved]
  - Vision blurred [Recovered/Resolved]
  - Abnormal loss of weight [Recovered/Resolved]
  - Constipation [Not Recovered/Not Resolved]
  - Off label use [Not Recovered/Not Resolved]
  - Constipation [Not Recovered/Not Resolved]
  - Cataract [Recovered/Resolved]
  - Varicose vein [Not Recovered/Not Resolved]
